FAERS Safety Report 21837890 (Version 1)
Quarter: 2023Q1

REPORT INFORMATION
  Report Type: Spontaneous
  Country: FR (occurrence: FR)
  Receive Date: 20230109
  Receipt Date: 20230109
  Transmission Date: 20230418
  Serious: Yes (Life-Threatening)
  Sender: FDA-Public Use
  Company Number: None

PATIENT
  Age: 51 Year
  Sex: Male
  Weight: 100 kg

DRUGS (6)
  1. VOTRIENT [Suspect]
     Active Substance: PAZOPANIB HYDROCHLORIDE
     Indication: Ewing^s sarcoma
     Dosage: 800 MG, QD
     Route: 048
     Dates: start: 20220823, end: 20220908
  2. DOXORUBICIN [Suspect]
     Active Substance: DOXORUBICIN
     Indication: Ewing^s sarcoma
     Dosage: 450 MG/M2 (TOTAL)
     Route: 042
     Dates: start: 20200715, end: 20201128
  3. VINCRISTINE [Suspect]
     Active Substance: VINCRISTINE
     Indication: Ewing^s sarcoma
     Dosage: 2 MG (2 MG PAR CURE)
     Route: 042
     Dates: start: 20200715, end: 20210204
  4. CYCLOPHOSPHAMIDE [Suspect]
     Active Substance: CYCLOPHOSPHAMIDE
     Indication: Ewing^s sarcoma
     Dosage: 2.4 G (2,4 G PAR CURE)
     Route: 042
     Dates: start: 20200715, end: 20210204
  5. ETOPOPHOS [Suspect]
     Active Substance: ETOPOSIDE PHOSPHATE
     Indication: Ewing^s sarcoma
     Dosage: 200 MG (200 MG PAR CURE) (LYOPHILISATE FOR PARENTERAL USE)
     Route: 042
     Dates: start: 20210104, end: 20210223
  6. IFOSFAMIDE [Suspect]
     Active Substance: IFOSFAMIDE
     Indication: Ewing^s sarcoma
     Dosage: 3.6 G (3.6 G PAR CURE)
     Route: 042
     Dates: start: 20210104, end: 20210223

REACTIONS (1)
  - Leukaemia [Not Recovered/Not Resolved]

NARRATIVE: CASE EVENT DATE: 20221003
